FAERS Safety Report 11102605 (Version 1)
Quarter: 2015Q2

REPORT INFORMATION
  Report Type: Report from Study
  Country: US (occurrence: US)
  Receive Date: 20150511
  Receipt Date: 20150511
  Transmission Date: 20150821
  Serious: Yes (Death)
  Sender: FDA-Public Use
  Company Number: US-SA-2015SA054370

PATIENT
  Age: 52 Year
  Sex: Male
  Weight: 71.2 kg

DRUGS (14)
  1. OMEPRAZOLE. [Concomitant]
     Active Substance: OMEPRAZOLE
     Route: 065
  2. OXALIPLATIN. [Suspect]
     Active Substance: OXALIPLATIN
     Indication: OESOPHAGEAL CANCER METASTATIC
     Route: 041
     Dates: start: 20141029, end: 20141029
  3. LIDOCAINE. [Concomitant]
     Active Substance: LIDOCAINE
     Route: 065
  4. LEUCOVORIN [Suspect]
     Active Substance: LEUCOVORIN
     Indication: OESOPHAGEAL CANCER METASTATIC
     Route: 041
     Dates: start: 20141029, end: 20141029
  5. LEUCOVORIN [Suspect]
     Active Substance: LEUCOVORIN
     Indication: OESOPHAGEAL CANCER METASTATIC
     Route: 041
  6. 5 FU [Suspect]
     Active Substance: FLUOROURACIL
     Indication: OESOPHAGEAL CANCER METASTATIC
     Route: 041
     Dates: start: 20141029, end: 20141029
  7. 5 FU [Suspect]
     Active Substance: FLUOROURACIL
     Indication: OESOPHAGEAL CANCER METASTATIC
     Route: 041
  8. DECADRON [Concomitant]
     Active Substance: DEXAMETHASONE
     Route: 065
  9. OXALIPLATIN. [Suspect]
     Active Substance: OXALIPLATIN
     Indication: OESOPHAGEAL CANCER METASTATIC
     Route: 041
  10. COMPAZINE [Concomitant]
     Active Substance: PROCHLORPERAZINE MALEATE
     Route: 065
  11. AFLIBERCEPT [Suspect]
     Active Substance: AFLIBERCEPT
     Indication: OESOPHAGEAL CANCER METASTATIC
     Route: 041
     Dates: start: 20141029, end: 20141029
  12. AFLIBERCEPT [Suspect]
     Active Substance: AFLIBERCEPT
     Indication: OESOPHAGEAL CANCER METASTATIC
     Route: 041
  13. ONDANSETRON HYDROCHLORIDE. [Concomitant]
     Active Substance: ONDANSETRON HYDROCHLORIDE
     Route: 065
  14. PERIDEX [Concomitant]
     Active Substance: CHLORHEXIDINE GLUCONATE
     Route: 065

REACTIONS (1)
  - Arrhythmia [Fatal]

NARRATIVE: CASE EVENT DATE: 20150422
